FAERS Safety Report 7579221-5 (Version None)
Quarter: 2011Q2

REPORT INFORMATION
  Report Type: 
  Country: None (occurrence: None)
  Receive Date: 20110628
  Receipt Date: 20110615
  Transmission Date: 20111010
  Serious: Yes (Hospitalization)
  Sender: FDA-Public Use
  Company Number: CH-ELI_LILLY_AND_COMPANY-CH201106004823

PATIENT
  Age: 53 Year
  Sex: Male

DRUGS (1)
  1. CYMBALTA [Suspect]
     Indication: DEPRESSION
     Dosage: UNK UNK, UNKNOWN
     Route: 048
     Dates: start: 20110219, end: 20110222

REACTIONS (4)
  - SALIVARY HYPERSECRETION [None]
  - LARYNGEAL OEDEMA [None]
  - DYSPHAGIA [None]
  - ORAL PAIN [None]
